FAERS Safety Report 8507002 (Version 2)
Quarter: 2012Q4

REPORT INFORMATION
  Report Type: 
  Country: US (occurrence: US)
  Receive Date: 20120412
  Receipt Date: 20120913
  Transmission Date: 20130627
  Serious: No
  Sender: FDA-Public Use
  Company Number: US-ASTRAZENECA-2011SE53612

PATIENT
  Age: 55 Year
  Sex: Female

DRUGS (3)
  1. NEXIUM [Suspect]
     Route: 048
  2. ALBUTEROL [Concomitant]
  3. ADVAIR [Concomitant]

REACTIONS (5)
  - Ear infection [Unknown]
  - Abdominal discomfort [Unknown]
  - Malaise [Unknown]
  - Drug ineffective [Unknown]
  - Drug dose omission [Unknown]
